FAERS Safety Report 5043589-4 (Version None)
Quarter: 2006Q2

REPORT INFORMATION
  Report Type: 
  Country: None (occurrence: None)
  Receive Date: 20060629
  Receipt Date: 20060616
  Transmission Date: 20061013
  Serious: Yes (Death, Hospitalization)
  Sender: FDA-Public Use
  Company Number: CLOF-10251

PATIENT
  Age: 60 Year
  Sex: Male
  Weight: 89.8 kg

DRUGS (39)
  1. CLOFARABINE [Suspect]
     Indication: MYELOID LEUKAEMIA
     Dosage: 87 MG QD X 5 IV
     Route: 042
     Dates: start: 20060525, end: 20060529
  2. CLOFARABINE [Suspect]
     Indication: MYELOID LEUKAEMIA
     Dosage: 65 MG QD X 5 IV
     Route: 042
     Dates: start: 20060609, end: 20060611
  3. CYTARABINE [Suspect]
     Indication: MYELOID LEUKAEMIA
     Dosage: 4360 MG QD X 5 IV
     Route: 042
     Dates: start: 20060525, end: 20060529
  4. CYTARABINE [Suspect]
     Indication: MYELOID LEUKAEMIA
     Dosage: 3270 MG QD X 5 IV
     Route: 042
     Dates: start: 20060609, end: 20060611
  5. VANCOMYCIN [Concomitant]
  6. ACETAMINOPHEN [Concomitant]
  7. ALBUTEROL SULFATE AND IPRATROPIUM BROMIDE [Concomitant]
  8. AMILORIDE [Concomitant]
  9. AMPHOTERICIN B [Concomitant]
  10. CEFEPIME [Concomitant]
  11. CALCIUM POLYCARBOPHIL [Concomitant]
  12. CLORHEXIDINE GLUCONATE [Concomitant]
  13. COD LIVER OIL-ZINC OXIDE [Concomitant]
  14. CYANOCOBALAMIN [Concomitant]
  15. DEXAMETHASONE SODIUM PHOSPHATE [Concomitant]
  16. DIPHENHYDRAMINE HCL [Concomitant]
  17. HEPARIN LOCK-FLUSH [Concomitant]
  18. HEPARIN SODIUM [Concomitant]
  19. HYDROCORTISONE SODIUM SUCCINATE [Concomitant]
  20. MEGESTROL ACETATE [Concomitant]
  21. MEROPENEM [Concomitant]
  22. OCTREOTIDE ACETATE [Concomitant]
  23. NYSTATIN TOPICAL PREP [Concomitant]
  24. ONDANSETRON HCL [Concomitant]
  25. PANTOPRAZOLE SODIUM [Concomitant]
  26. PHOSPHORUS [Concomitant]
  27. POLYVINYL ALCOHOL [Concomitant]
  28. PREDNISONE ACETATE [Concomitant]
  29. RANITIDINE [Concomitant]
  30. SODIUM BICARBONATE [Concomitant]
  31. SODIUM CHLORIDE [Concomitant]
  32. MORPHINE [Concomitant]
  33. TRIAMCINOLONE-EUCERIN [Concomitant]
  34. VASOPRESSIN [Concomitant]
  35. DEXTROSE 5% IN WATER [Concomitant]
  36. EPINEPHRINE [Concomitant]
  37. HUMULIN R [Concomitant]
  38. POTASSIUM CHLORIDE [Concomitant]
  39. POTASSIUM PHOSPHATES [Concomitant]

REACTIONS (24)
  - ALANINE AMINOTRANSFERASE INCREASED [None]
  - ASPARTATE AMINOTRANSFERASE INCREASED [None]
  - ASTHENIA [None]
  - BLOOD LACTIC ACID INCREASED [None]
  - BLOOD PH DECREASED [None]
  - BLOOD PHOSPHORUS INCREASED [None]
  - CARDIO-RESPIRATORY ARREST [None]
  - DIARRHOEA [None]
  - FATIGUE [None]
  - FUNGAL RASH [None]
  - GENERAL PHYSICAL HEALTH DETERIORATION [None]
  - HYPOTENSION [None]
  - NAUSEA [None]
  - NEUTROPENIA [None]
  - OEDEMA PERIPHERAL [None]
  - OXYGEN SATURATION DECREASED [None]
  - PAIN IN EXTREMITY [None]
  - PAIN OF SKIN [None]
  - PETECHIAE [None]
  - RASH ERYTHEMATOUS [None]
  - RASH PAPULAR [None]
  - SEPSIS [None]
  - SKIN OEDEMA [None]
  - VOMITING [None]
